FAERS Safety Report 17275945 (Version 1)
Quarter: 2020Q1

REPORT INFORMATION
  Report Type: Spontaneous
  Country: US (occurrence: US)
  Receive Date: 20191224
  Receipt Date: 20191224
  Transmission Date: 20200409
  Serious: Yes (Hospitalization)
  Sender: FDA-Public Use
  Company Number: None

PATIENT
  Age: 69 Year
  Sex: Male

DRUGS (1)
  1. ASPIRIN (ASPIRIN 81MG TAB, EC) [Suspect]
     Active Substance: ASPIRIN
     Indication: CORONARY ARTERY DISEASE
     Route: 048
     Dates: start: 20150123, end: 20191217

REACTIONS (5)
  - Dizziness postural [None]
  - Lower gastrointestinal haemorrhage [None]
  - Rectal haemorrhage [None]
  - Diverticulum intestinal [None]
  - Small intestinal haemorrhage [None]

NARRATIVE: CASE EVENT DATE: 20191214
